FAERS Safety Report 24055257 (Version 1)
Quarter: 2024Q3

REPORT INFORMATION
  Report Type: Spontaneous
  Country: CA (occurrence: CA)
  Receive Date: 20240705
  Receipt Date: 20240705
  Transmission Date: 20241017
  Serious: Yes (Hospitalization, Other)
  Sender: RECKITT BENCKISER
  Company Number: CA-INDIVIOR US-INDV-145759-2024

PATIENT
  Age: 34 Year
  Sex: Female

DRUGS (11)
  1. SUBLOCADE [Suspect]
     Active Substance: BUPRENORPHINE
     Indication: Drug use disorder
     Dosage: UNK, QMO
     Route: 065
  2. SUBLOCADE [Suspect]
     Active Substance: BUPRENORPHINE
  3. SUBLOCADE [Suspect]
     Active Substance: BUPRENORPHINE
     Indication: Drug use disorder
     Dosage: 300 MILLIGRAM, QMO
     Route: 058
  4. FENTANYL [Suspect]
     Active Substance: FENTANYL\FENTANYL CITRATE
     Indication: Product used for unknown indication
     Dosage: 1 GRAM, UNKNOWN
     Route: 055
  5. BUPRENORPHINE HYDROCHLORIDE\NALOXONE HYDROCHLORIDE [Concomitant]
     Active Substance: BUPRENORPHINE HYDROCHLORIDE\NALOXONE HYDROCHLORIDE
     Indication: Drug use disorder
     Dosage: 4 MILLIGRAM, QD, PRN (POST INDUCTION)
     Route: 060
  6. BUTRANS [Concomitant]
     Active Substance: BUPRENORPHINE
     Indication: Drug use disorder
     Dosage: 120 MICROGRAM (6?20 MCG/H) INDUCTION DAY 01
     Route: 062
  7. BUTRANS [Concomitant]
     Active Substance: BUPRENORPHINE
     Dosage: 120 MICROGRAM (6?20 MCG/H) INDUCTION DAY 02
     Route: 062
  8. KADIAN [Concomitant]
     Active Substance: MORPHINE SULFATE
     Indication: Drug use disorder
     Dosage: 500 MILLIGRAM, QD (BEFORE INDUCTION)
     Route: 048
  9. KADIAN [Concomitant]
     Active Substance: MORPHINE SULFATE
     Dosage: 500 MILLIGRAM, QD  (INDUCTION DAY 01)
     Route: 048
  10. KADIAN [Concomitant]
     Active Substance: MORPHINE SULFATE
     Dosage: 500 MILLIGRAM, QD  (INDUCTION DAY 02)
     Route: 048
  11. SERTRALINE [Concomitant]
     Active Substance: SERTRALINE HYDROCHLORIDE
     Indication: Major depression
     Dosage: UNK
     Route: 065

REACTIONS (5)
  - Asthma [Unknown]
  - Pneumonia [Unknown]
  - Inappropriate schedule of product administration [Recovered/Resolved]
  - Drug withdrawal syndrome [Unknown]
  - Drug dependence [Unknown]
